FAERS Safety Report 6528173-5 (Version None)
Quarter: 2010Q1

REPORT INFORMATION
  Report Type: 
  Country: None (occurrence: None)
  Receive Date: 20100106
  Receipt Date: 19910214
  Transmission Date: 20100710
  Serious: Yes (Life-Threatening)
  Sender: FDA-Public Use
  Company Number: US-SANOFI-AVENTIS-199100369HAG

PATIENT
  Age: 56 Year
  Sex: Male

DRUGS (7)
  1. PETHIDINE HYDROCHLORIDE [Suspect]
     Dosage: DOSE AS USED: 75-150 MG
     Dates: start: 19900801, end: 19900801
  2. SELEGILINE HCL [Suspect]
     Indication: PARKINSON'S DISEASE
     Route: 048
     Dates: end: 19900801
  3. HYDROXYZINE [Concomitant]
     Dates: start: 19900801, end: 19900801
  4. PERGOLIDE [Concomitant]
     Route: 048
  5. CARBIDOPA-LEVODOPA [Concomitant]
     Route: 048
  6. IMIPRAMINE [Concomitant]
     Route: 048
  7. DESIPRAMINE [Concomitant]
     Route: 048

REACTIONS (8)
  - AGITATION [None]
  - DELIRIUM [None]
  - DRUG INTERACTION [None]
  - HYPERHIDROSIS [None]
  - MUSCLE RIGIDITY [None]
  - PYREXIA [None]
  - RESTLESSNESS [None]
  - STUPOR [None]
